FAERS Safety Report 10244031 (Version 1)
Quarter: 2014Q1

REPORT INFORMATION
  Report Type: Spontaneous
  Country: US (occurrence: None)
  Receive Date: 20140306
  Receipt Date: 20140306
  Transmission Date: 20141002
  Serious: Yes (Other)
  Sender: FDA-Public Use
  Company Number: 163-21880-13110935

PATIENT
  Age: 57 Year
  Sex: Male

DRUGS (16)
  1. REVLIMID (LENALIDOMIDE) (25 MILLIGRAM, CAPSULES) [Suspect]
     Indication: PLASMA CELL MYELOMA
     Route: 048
     Dates: start: 20120510
  2. PRVACID (LANSOPRAZOLE) [Concomitant]
  3. TYLENOL (PARACETAMOL) [Concomitant]
  4. ASPIRIN (ACETYLASLICYLIC ACID) [Concomitant]
  5. MULTIVITAMINS (MULTIVITAMINS) [Concomitant]
  6. ULTRAM ER (TRAMADOL HYDROCHLORIDE) [Concomitant]
  7. ATIVAN (LORAZEPAM) [Concomitant]
  8. PROTONIX [Concomitant]
  9. BENADRYL (DIPHENHYDRAMINE HYDROCHLORIDE) [Concomitant]
  10. HYDROCODONE-ACETAMINOPHEN (REMEDEINE) [Concomitant]
  11. CORTISONE MAXIMUM STRENGTH (CORTISONE) [Concomitant]
  12. AMBIEN (ZOLPIDEM TARTRATE) [Concomitant]
  13. DEXAMETHASONE (DEXAMETHASONE) [Concomitant]
  14. SENOKOT-S (SENOKOT-S) [Concomitant]
  15. COLACE (DOCUSATE SODIUM) [Concomitant]
  16. WARFARIN (WARFARIN) [Concomitant]

REACTIONS (7)
  - Thrombosis [None]
  - Contusion [None]
  - Plasma cell myeloma [None]
  - Vision blurred [None]
  - Rash [None]
  - Muscle spasms [None]
  - Arthralgia [None]
